FAERS Safety Report 6166389-0 (Version None)
Quarter: 2009Q2

REPORT INFORMATION
  Report Type: 
  Country: None (occurrence: None)
  Receive Date: 20090422
  Receipt Date: 20090422
  Transmission Date: 20091009
  Serious: Yes (Death)
  Sender: FDA-Public Use
  Company Number: None

PATIENT
  Sex: Female
  Weight: 57.8 kg

DRUGS (2)
  1. TEMSIROLIMUS [Suspect]
     Indication: NON-SMALL CELL LUNG CANCER
     Dosage: 20 MG IV WEEKLY
     Route: 042
     Dates: start: 20090408, end: 20090415
  2. TEMSIROLIMUS [Suspect]

REACTIONS (1)
  - SUDDEN DEATH [None]
